FAERS Safety Report 8771422 (Version 1)
Quarter: 2012Q4

REPORT INFORMATION
  Report Type: 
  Country: DE (occurrence: FR)
  Receive Date: 20120905
  Receipt Date: 20120905
  Transmission Date: 20130627
  Serious: Yes (Other)
  Sender: FDA-Public Use
  Company Number: FR-BRISTOL-MYERS SQUIBB COMPANY-16916694

PATIENT
  Age: 45 Year
  Sex: Female

DRUGS (4)
  1. GLUCOPHAGE TABS 1000 MG [Suspect]
     Dosage: Film coated
     Route: 048
     Dates: start: 2004, end: 20120514
  2. ACARBOSE [Suspect]
     Dosage: from before jun11, 50mg tab
     Route: 048
     Dates: end: 20120514
  3. DIAMICRON [Suspect]
     Dosage: Before: feb11
     Dates: end: 20120514
  4. VICTOZA [Suspect]
     Dosage: Solution for inj, 6mg/ml
     Route: 058
     Dates: start: 201106, end: 20120514

REACTIONS (3)
  - Abortion spontaneous [Recovered/Resolved]
  - Pregnancy [Recovered/Resolved]
  - Exposure during pregnancy [None]
